FAERS Safety Report 9051839 (Version 1)
Quarter: 2013Q1

REPORT INFORMATION
  Report Type: Spontaneous
  Country: US (occurrence: US)
  Receive Date: 20130207
  Receipt Date: 20130207
  Transmission Date: 20140127
  Serious: Yes (Hospitalization)
  Sender: FDA-Public Use
  Company Number: US-BAYER-2013-013585

PATIENT
  Age: 29 Year
  Sex: Female

DRUGS (5)
  1. YASMIN [Suspect]
  2. PRENATAL [Concomitant]
  3. OXYCODONE W/PARACETAMOL [Concomitant]
  4. CYCLOBENZAPRINE [Concomitant]
  5. IBUPROFEN [Concomitant]

REACTIONS (3)
  - Pelvic venous thrombosis [None]
  - Deep vein thrombosis [None]
  - Vena cava thrombosis [None]
